FAERS Safety Report 7045498-8 (Version None)
Quarter: 2010Q4

REPORT INFORMATION
  Report Type: 
  Country: None (occurrence: None)
  Receive Date: 20101014
  Receipt Date: 20101004
  Transmission Date: 20110411
  Serious: Yes (Death, Other)
  Sender: FDA-Public Use
  Company Number: US-GENZYME-THYM-1001877

PATIENT
  Age: 41 Year
  Sex: Female

DRUGS (14)
  1. THYMOGLOBULIN [Suspect]
     Indication: ACUTE GRAFT VERSUS HOST DISEASE
     Dosage: UNK
  2. THYMOGLOBULIN [Suspect]
     Indication: CHRONIC GRAFT VERSUS HOST DISEASE
  3. SIROLIMUS [Suspect]
     Indication: ACUTE GRAFT VERSUS HOST DISEASE
     Dosage: 0.2 MG, UNK
     Route: 048
  4. SIROLIMUS [Suspect]
     Indication: CHRONIC GRAFT VERSUS HOST DISEASE
  5. BUSULFAN [Concomitant]
     Indication: BONE MARROW CONDITIONING REGIMEN
     Dosage: UNK
     Dates: start: 20070101
  6. CYCLOPHOSPHAMIDE [Concomitant]
     Indication: BONE MARROW CONDITIONING REGIMEN
     Dosage: UNK
     Dates: start: 20070101
  7. TACROLIMUS [Concomitant]
     Indication: PROPHYLAXIS AGAINST GRAFT VERSUS HOST DISEASE
  8. MYCOPHENOLATE MOFETIL [Concomitant]
     Indication: PROPHYLAXIS AGAINST GRAFT VERSUS HOST DISEASE
     Dosage: UNK
  9. METHYLPREDNISOLONE [Concomitant]
     Indication: ACUTE GRAFT VERSUS HOST DISEASE
     Dosage: UNK
  10. METHYLPREDNISOLONE [Concomitant]
     Indication: CHRONIC GRAFT VERSUS HOST DISEASE
  11. ETANERCEPT [Concomitant]
     Indication: ACUTE GRAFT VERSUS HOST DISEASE
  12. ETANERCEPT [Concomitant]
     Indication: CHRONIC GRAFT VERSUS HOST DISEASE
  13. RITUXIMAB [Concomitant]
     Indication: ACUTE GRAFT VERSUS HOST DISEASE
     Dosage: UNK
  14. RITUXIMAB [Concomitant]
     Indication: CHRONIC GRAFT VERSUS HOST DISEASE

REACTIONS (6)
  - BRONCHOPNEUMONIA [None]
  - HYPOXIA [None]
  - LUNG INFILTRATION [None]
  - PULMONARY ALVEOLAR HAEMORRHAGE [None]
  - PULMONARY FIBROSIS [None]
  - RESPIRATORY FAILURE [None]
